FAERS Safety Report 7376742-5 (Version None)
Quarter: 2011Q1

REPORT INFORMATION
  Report Type: 
  Country: None (occurrence: None)
  Receive Date: 20110325
  Receipt Date: 20110228
  Transmission Date: 20110831
  Serious: No
  Sender: FDA-Public Use
  Company Number: US-B.I. PHARMACEUTICALS,INC./RIDGEFIELD-2011-BP-07207BP

PATIENT
  Sex: Female

DRUGS (2)
  1. CELEBREX [Concomitant]
     Indication: INFLAMMATION
  2. MOBIC [Suspect]
     Indication: INFLAMMATION

REACTIONS (8)
  - ARTHRALGIA [None]
  - MUSCULOSKELETAL STIFFNESS [None]
  - DRUG INEFFECTIVE [None]
  - OEDEMA PERIPHERAL [None]
  - MYALGIA [None]
  - PAIN IN EXTREMITY [None]
  - RHEUMATOID ARTHRITIS [None]
  - HEADACHE [None]
